FAERS Safety Report 6048412-7 (Version None)
Quarter: 2009Q1

REPORT INFORMATION
  Report Type: 
  Country: None (occurrence: None)
  Receive Date: 20090123
  Receipt Date: 20090121
  Transmission Date: 20090719
  Serious: Yes (Hospitalization)
  Sender: FDA-Public Use
  Company Number: A0764324A

PATIENT
  Age: 63 Year
  Sex: Male

DRUGS (3)
  1. ADVAIR DISKUS 100/50 [Suspect]
     Indication: CHRONIC OBSTRUCTIVE PULMONARY DISEASE
     Dosage: 1PUFF TWICE PER DAY
     Route: 055
     Dates: start: 20071101
  2. ALBUTEROL [Concomitant]
  3. CIPRO [Concomitant]

REACTIONS (3)
  - JOINT INJURY [None]
  - LIMB INJURY [None]
  - TENDON RUPTURE [None]
